FAERS Safety Report 14998946 (Version 2)
Quarter: 2018Q3

REPORT INFORMATION
  Report Type: Report from Study
  Country: None (occurrence: US)
  Receive Date: 20180612
  Receipt Date: 20180828
  Transmission Date: 20181010
  Serious: Yes (Other)
  Sender: FDA-Public Use
  Company Number: US-ABBVIE-18K-163-2382400-00

PATIENT
  Age: 22 Year
  Sex: Male

DRUGS (1)
  1. HUMIRA [Suspect]
     Active Substance: ADALIMUMAB
     Indication: CROHN^S DISEASE
     Route: 058
     Dates: end: 2018

REACTIONS (6)
  - Abdominal discomfort [Unknown]
  - Procedural haemorrhage [Unknown]
  - Appendicectomy [Recovering/Resolving]
  - Incision site swelling [Unknown]
  - Inappropriate schedule of drug administration [Unknown]
  - Abdominal pain upper [Recovering/Resolving]

NARRATIVE: CASE EVENT DATE: 2018
